FAERS Safety Report 24174764 (Version 1)
Quarter: 2024Q3

REPORT INFORMATION
  Report Type: Spontaneous
  Country: GB (occurrence: None)
  Receive Date: 20240805
  Receipt Date: 20240805
  Transmission Date: 20241017
  Serious: Yes (Other)
  Sender: ASTRAZENECA
  Company Number: 2024A175262

PATIENT
  Age: 55 Year
  Sex: Female
  Weight: 68 kg

DRUGS (6)
  1. DAPAGLIFLOZIN [Suspect]
     Active Substance: DAPAGLIFLOZIN
     Dosage: 10.0MG UNKNOWN
  2. AMITRIPTYLINE HYDROCHLORIDE [Concomitant]
     Active Substance: AMITRIPTYLINE HYDROCHLORIDE
     Indication: Pain
     Dosage: ONE TABLET TO BE TAKEN AT NIGHT TO HELP PAIN CO...
     Dates: start: 20230816
  3. ATORVASTATIN [Concomitant]
     Active Substance: ATORVASTATIN
     Dosage: ONE TABLET TO BE TAKEN IN THE EVENING TO LOWER ...
     Dates: start: 20230816
  4. METFORMIN [Concomitant]
     Active Substance: METFORMIN HYDROCHLORIDE
     Dosage: TAKE ONE TABLET TWO TIMES DAILY
     Dates: start: 20230816
  5. RAMIPRIL [Concomitant]
     Active Substance: RAMIPRIL
     Dates: start: 20230816
  6. ESTRADIOL [Concomitant]
     Active Substance: ESTRADIOL
     Dosage: ONE PATCH TO BE APPLIED TWICE A WEEK TO CLEAN ...
     Dates: start: 20240201

REACTIONS (3)
  - Vaginal haemorrhage [Unknown]
  - Dizziness [Unknown]
  - Nausea [Unknown]
